FAERS Safety Report 11813021 (Version 8)
Quarter: 2018Q1

REPORT INFORMATION
  Report Type: Spontaneous
  Country: IT (occurrence: IT)
  Receive Date: 20151209
  Receipt Date: 20180223
  Transmission Date: 20180508
  Serious: Yes (Hospitalization, Other)
  Sender: FDA-Public Use
  Company Number: IT-ACCORD-036013

PATIENT
  Age: 41 Year
  Sex: Male

DRUGS (9)
  1. RIVOTRIL [Suspect]
     Active Substance: CLONAZEPAM
     Dosage: 2 MG TOTAL ORAL
     Route: 048
  2. MIRTAZAPINE. [Concomitant]
     Active Substance: MIRTAZAPINE
     Route: 048
  3. QUETIAPINE. [Suspect]
     Active Substance: QUETIAPINE
     Route: 048
  4. ANSIOLIN [Suspect]
     Active Substance: DIAZEPAM
     Indication: PRODUCT USED FOR UNKNOWN INDICATION
     Dosage: 0.5%
     Route: 048
  5. DEPAKIN CHRONO [Suspect]
     Active Substance: VALPROIC ACID
     Dosage: 500 MG
     Route: 048
  6. TRITTICO [Suspect]
     Active Substance: TRAZODONE HYDROCHLORIDE
     Indication: PRODUCT USED FOR UNKNOWN INDICATION
     Dosage: 100 MG
     Route: 048
  7. ANSIOLIN [Suspect]
     Active Substance: DIAZEPAM
     Indication: PRODUCT USED FOR UNKNOWN INDICATION
     Route: 048
  8. LITHIUM. [Concomitant]
     Active Substance: LITHIUM
     Route: 048
  9. VALDORM (FLURAZEPAM HYDROCHLORIDE) [Suspect]
     Active Substance: FLURAZEPAM HYDROCHLORIDE
     Dosage: 60 MG TOTAL ORAL
     Route: 048

REACTIONS (6)
  - Drug abuse [Recovering/Resolving]
  - Nausea [Unknown]
  - Psychomotor hyperactivity [Recovering/Resolving]
  - Intentional self-injury [Unknown]
  - Insomnia [None]
  - Retching [Unknown]

NARRATIVE: CASE EVENT DATE: 20151006
